FAERS Safety Report 17899108 (Version 2)
Quarter: 2022Q3

REPORT INFORMATION
  Report Type: Spontaneous
  Country: US (occurrence: US)
  Receive Date: 20200616
  Receipt Date: 20220915
  Transmission Date: 20221026
  Serious: Yes (Death, Other)
  Sender: FDA-Public Use
  Company Number: US-SAARTEMIS-SAC202006120203

PATIENT
  Age: 65 Year
  Sex: Female

DRUGS (2)
  1. ZANTAC [Suspect]
     Active Substance: RANITIDINE HYDROCHLORIDE
     Indication: Dyspepsia
     Dosage: 150 MG, QD
     Dates: start: 200001, end: 201711
  2. ZANTAC [Suspect]
     Active Substance: RANITIDINE HYDROCHLORIDE
     Indication: Gastrooesophageal reflux disease

REACTIONS (4)
  - Gastric cancer stage IV [Unknown]
  - Hepatic cancer stage IV [Unknown]
  - Gallbladder cancer stage IV [Unknown]
  - Mesenteric neoplasm [Fatal]

NARRATIVE: CASE EVENT DATE: 20171101
